FAERS Safety Report 23799751 (Version 1)
Quarter: 2024Q2

REPORT INFORMATION
  Report Type: Spontaneous
  Country: US (occurrence: None)
  Receive Date: 20240429
  Receipt Date: 20240429
  Transmission Date: 20240716
  Serious: Yes (Other)
  Sender: FDA-Public Use
  Company Number: None

PATIENT
  Age: 62 Year
  Sex: Male
  Weight: 136 kg

DRUGS (1)
  1. VENOFER [Suspect]
     Active Substance: IRON SUCROSE
     Indication: Iron deficiency anaemia
     Dosage: 200 MG INTRAVNEONOUS
     Route: 042
     Dates: start: 20240319, end: 20240423

REACTIONS (6)
  - Dizziness [None]
  - Dyskinesia [None]
  - Loss of consciousness [None]
  - Urinary incontinence [None]
  - Drug hypersensitivity [None]
  - Grunting [None]

NARRATIVE: CASE EVENT DATE: 20240423
